FAERS Safety Report 4533342-X (Version None)
Quarter: 2004Q4

REPORT INFORMATION
  Report Type: 
  Country: None (occurrence: None)
  Receive Date: 20041210
  Receipt Date: 20041024
  Transmission Date: 20050328
  Serious: No
  Sender: FDA-Public Use
  Company Number: A03200403596

PATIENT
  Sex: Male

DRUGS (1)
  1. ELOXATIN [Suspect]
     Dosage: INTRAVENOUS NOS
     Route: 042

REACTIONS (1)
  - PERIPHERAL SENSORY NEUROPATHY [None]
